FAERS Safety Report 7133130-4 (Version None)
Quarter: 2010Q4

REPORT INFORMATION
  Report Type: 
  Country: None (occurrence: None)
  Receive Date: 20101202
  Receipt Date: 20101118
  Transmission Date: 20110411
  Serious: Yes (Other)
  Sender: FDA-Public Use
  Company Number: JP-JNJFOC-20101107484

PATIENT
  Age: 42 Year
  Sex: Female

DRUGS (1)
  1. RISPERDAL [Suspect]
     Indication: SCHIZOPHRENIA
     Route: 048

REACTIONS (4)
  - BLOOD PROLACTIN INCREASED [None]
  - GALACTORRHOEA [None]
  - HYPERGLYCAEMIA [None]
  - MASTITIS [None]
